FAERS Safety Report 20632055 (Version 1)
Quarter: 2022Q1

REPORT INFORMATION
  Report Type: Spontaneous
  Country: CN (occurrence: CN)
  Receive Date: 20220324
  Receipt Date: 20220324
  Transmission Date: 20220423
  Serious: Yes (Hospitalization, Other)
  Sender: FDA-Public Use
  Company Number: CN-009507513-2203CHN006931

PATIENT
  Age: 55 Year
  Sex: Female
  Weight: 66 kg

DRUGS (4)
  1. KEYTRUDA [Suspect]
     Active Substance: PEMBROLIZUMAB
     Indication: Neoplasm
     Dosage: 6TH CYCLE, 200 MG, FREQUENCY Q21D, D1
     Route: 041
     Dates: start: 20220304, end: 20220304
  2. CARBOPLATIN [Suspect]
     Active Substance: CARBOPLATIN
     Indication: Lung carcinoma cell type unspecified recurrent
     Dosage: 6TH CYCLE, 200 MG, FREQUENCY Q21D, D1
     Route: 041
     Dates: start: 20220304, end: 20220304
  3. PACLITAXEL [Suspect]
     Active Substance: PACLITAXEL
     Indication: Neoplasm
     Dosage: 6TH CYCLE, 400 MG, FREQUENCY Q21D, D1
     Route: 042
     Dates: start: 20220304, end: 20220304
  4. DEXTROSE [Concomitant]
     Active Substance: DEXTROSE
     Indication: Lung carcinoma cell type unspecified recurrent
     Dosage: 500 ML, ONCE (ALSO REPORTED AS Q21D), D1
     Route: 041
     Dates: start: 20220304, end: 20220304

REACTIONS (2)
  - Myelosuppression [Recovering/Resolving]
  - Drug-induced liver injury [Unknown]

NARRATIVE: CASE EVENT DATE: 20220307
